FAERS Safety Report 21024274 (Version 2)
Quarter: 2022Q3

REPORT INFORMATION
  Report Type: Spontaneous
  Country: US (occurrence: US)
  Receive Date: 20220629
  Receipt Date: 20220730
  Transmission Date: 20221026
  Serious: Yes (Other)
  Sender: FDA-Public Use
  Company Number: US-AMGEN-USASP2022108896

PATIENT
  Age: 82 Year
  Sex: Female

DRUGS (1)
  1. PROLIA [Suspect]
     Active Substance: DENOSUMAB
     Indication: Osteoporosis
     Dosage: UNK
     Route: 065
     Dates: start: 2012

REACTIONS (6)
  - Dry age-related macular degeneration [Unknown]
  - Neovascular age-related macular degeneration [Unknown]
  - Lumbar vertebral fracture [Recovered/Resolved]
  - Thoracic vertebral fracture [Recovered/Resolved]
  - Mobility decreased [Unknown]
  - Posture abnormal [Not Recovered/Not Resolved]

NARRATIVE: CASE EVENT DATE: 20180101
